FAERS Safety Report 20516678 (Version 3)
Quarter: 2022Q1

REPORT INFORMATION
  Report Type: Report from Study
  Country: US (occurrence: US)
  Receive Date: 20220225
  Receipt Date: 20220301
  Transmission Date: 20220424
  Serious: Yes (Death)
  Sender: FDA-Public Use
  Company Number: US-ABBVIE-22K-163-4290967-00

PATIENT
  Age: 82 Year
  Sex: Male

DRUGS (2)
  1. DUOPA [Suspect]
     Active Substance: CARBIDOPA\LEVODOPA
     Indication: Parkinson^s disease
     Dosage: MD: 9ML(8.5ML-9.5ML), CD: 2.8ML (2.3ML-3.3ML), ED: 1ML (1ML-1.5ML), 4.63 MG/ML 20 MG/ML
     Route: 050
     Dates: start: 202112
  2. DUOPA [Suspect]
     Active Substance: CARBIDOPA\LEVODOPA

REACTIONS (1)
  - Clinical death [Fatal]

NARRATIVE: CASE EVENT DATE: 20220222
